FAERS Safety Report 15439708 (Version 1)
Quarter: 2018Q3

REPORT INFORMATION
  Report Type: Spontaneous
  Country: MA (occurrence: MA)
  Receive Date: 20180928
  Receipt Date: 20180928
  Transmission Date: 20181010
  Serious: Yes (Hospitalization)
  Sender: FDA-Public Use
  Company Number: MA-NOVAST LABORATORIES, LTD-MA-2018NOV000341

PATIENT
  Age: 26 Month
  Sex: Male

DRUGS (2)
  1. PHENOBARBITAL. [Suspect]
     Active Substance: PHENOBARBITAL
     Indication: EPILEPSY
     Dosage: 35 MG/KG, QD
  2. BUTALBITAL, ACETAMINOPHEN, AND CAFFEINE [Suspect]
     Active Substance: ACETAMINOPHEN\BUTALBITAL\CAFFEINE
     Indication: PYREXIA
     Dosage: 3% (SYRUP)

REACTIONS (2)
  - Hepatitis [Unknown]
  - Cholestasis [Unknown]
